FAERS Safety Report 22105417 (Version 1)
Quarter: 2023Q1

REPORT INFORMATION
  Report Type: Spontaneous
  Country: US (occurrence: US)
  Receive Date: 20230317
  Receipt Date: 20230317
  Transmission Date: 20230418
  Serious: No
  Sender: FDA-Public Use
  Company Number: US-ICU MEDICAL, INC.-ICU2022US00048

PATIENT

DRUGS (1)
  1. STERILE WATER FOR IRRIGATION [Suspect]
     Active Substance: WATER
     Indication: Product used for unknown indication
     Dosage: UNK
     Route: 065
     Dates: start: 20221011

REACTIONS (2)
  - Product selection error [Unknown]
  - No adverse event [Unknown]

NARRATIVE: CASE EVENT DATE: 20221011
